FAERS Safety Report 8459922-7 (Version None)
Quarter: 2012Q2

REPORT INFORMATION
  Report Type: 
  Country: None (occurrence: None)
  Receive Date: 20120622
  Receipt Date: 20120618
  Transmission Date: 20120825
  Serious: Yes (Hospitalization)
  Sender: FDA-Public Use
  Company Number: PHHY2012MX053425

PATIENT
  Sex: Female

DRUGS (5)
  1. LASIX [Concomitant]
     Dosage: 6 DF, DAILY
  2. EXFORGE [Suspect]
     Indication: HYPERTENSION
     Dosage: 1 DF (160/10 MG), BID
  3. LOPRESSOR [Concomitant]
     Dosage: 1 DF, QD
  4. SERTRALINE HYDROCHLORIDE [Concomitant]
     Dosage: 1 DF, QD
  5. EXFORGE [Suspect]
     Dosage: 1 DF (320/10 MG), QD

REACTIONS (1)
  - FLUID RETENTION [None]
